FAERS Safety Report 9204554 (Version 1)
Quarter: 2013Q2

REPORT INFORMATION
  Report Type: Spontaneous
  Country: US (occurrence: None)
  Receive Date: 20130401
  Receipt Date: 20130401
  Transmission Date: 20140414
  Serious: Yes (Other)
  Sender: FDA-Public Use
  Company Number: None

PATIENT
  Age: 46 Year
  Sex: Female
  Weight: 48.08 kg

DRUGS (2)
  1. BUPROPRION XL 150MG TAB MFG: GLOBAL [Suspect]
     Indication: DEPRESSION
     Dosage: BUPROPRION DAILY ORAL
     Route: 048
     Dates: start: 2013
  2. SERTRALINE 50MG CAMBER P [Suspect]
     Indication: DEPRESSION
     Dosage: SERTRALINE DAILY ORAL
     Route: 048
     Dates: start: 2011

REACTIONS (4)
  - Palpitations [None]
  - Blood pressure increased [None]
  - Product substitution issue [None]
  - Therapeutic response unexpected with drug substitution [None]
